FAERS Safety Report 17478571 (Version 1)
Quarter: 2020Q1

REPORT INFORMATION
  Report Type: Spontaneous
  Country: JP (occurrence: JP)
  Receive Date: 20200228
  Receipt Date: 20200228
  Transmission Date: 20200409
  Serious: Yes (Other)
  Sender: FDA-Public Use
  Company Number: JP-MYLANLABS-2019M1080056

PATIENT
  Sex: Female

DRUGS (2)
  1. TAMOXIFEN TABLETS 10MG ^MYL^ [Suspect]
     Active Substance: TAMOXIFEN
     Indication: INVASIVE BREAST CARCINOMA
     Route: 048
  2. LH-RH                              /00486501/ [Concomitant]
     Indication: INVASIVE BREAST CARCINOMA
     Route: 048

REACTIONS (1)
  - Oophorectomy bilateral [Unknown]
